FAERS Safety Report 6709913-9 (Version None)
Quarter: 2010Q2

REPORT INFORMATION
  Report Type: 
  Country: None (occurrence: None)
  Receive Date: 20100504
  Receipt Date: 20100417
  Transmission Date: 20101027
  Serious: Yes (Death, Hospitalization)
  Sender: FDA-Public Use
  Company Number: FR-TEVA-226751ISR

PATIENT
  Sex: Male

DRUGS (7)
  1. PREDNISOLONE [Suspect]
     Indication: PROSTATE CANCER
     Route: 048
     Dates: start: 20081113, end: 20090107
  2. PREDNISOLONE [Concomitant]
  3. ABIRATERONE ACETATE OR PLACEBO [Suspect]
     Indication: PROSTATE CANCER
     Dates: start: 20081113, end: 20090107
  4. ESCITALOPRAM OXALATE [Concomitant]
     Indication: ANXIETY
     Route: 048
     Dates: start: 20080319
  5. PERINDOPRIL [Concomitant]
     Indication: HYPERTENSION
     Route: 048
     Dates: start: 20040601
  6. DI-GESIC [Concomitant]
     Indication: CANCER PAIN
     Route: 048
     Dates: start: 20081210
  7. LEUPRORELIN [Concomitant]
     Indication: PROSTATE CANCER
     Route: 058
     Dates: start: 20081113

REACTIONS (3)
  - DISEASE PROGRESSION [None]
  - RENAL FAILURE [None]
  - RESPIRATORY TRACT INFECTION [None]
